FAERS Safety Report 9643866 (Version 1)
Quarter: 2013Q4

REPORT INFORMATION
  Report Type: Spontaneous
  Country: US (occurrence: US)
  Receive Date: 20131024
  Receipt Date: 20131024
  Transmission Date: 20140711
  Serious: No
  Sender: FDA-Public Use
  Company Number: US-ASTRAZENECA-2013SE74680

PATIENT
  Sex: Female

DRUGS (6)
  1. CRESTOR [Suspect]
     Indication: BLOOD CHOLESTEROL ABNORMAL
     Dosage: DAILY
     Route: 048
  2. SLIM QUICK [Concomitant]
  3. KETONE RASBERRY DIET PILLS [Concomitant]
  4. ADIPEX [Concomitant]
  5. ZOCOR [Concomitant]
  6. LIPITOR [Concomitant]

REACTIONS (4)
  - Nervous system disorder [Not Recovered/Not Resolved]
  - Weight increased [Not Recovered/Not Resolved]
  - Body height decreased [Not Recovered/Not Resolved]
  - Weight fluctuation [Unknown]
